FAERS Safety Report 7464065-5 (Version None)
Quarter: 2011Q2

REPORT INFORMATION
  Report Type: 
  Country: None (occurrence: None)
  Receive Date: 20110506
  Receipt Date: 20110418
  Transmission Date: 20111010
  Serious: Yes (Other)
  Sender: FDA-Public Use
  Company Number: PHHY2011BE13292

PATIENT
  Age: 35 Year
  Sex: Male

DRUGS (7)
  1. TEKTURNA [Suspect]
     Indication: HYPERTENSION
     Dosage: 150 MG, UNK
     Route: 048
     Dates: start: 20100901
  2. LOORTAN [Concomitant]
     Indication: HYPERTENSION
     Dosage: 50 MG, UNK
  3. TEKTURNA [Suspect]
     Dosage: 300 MG, UNK
     Route: 048
     Dates: start: 20110101
  4. SIMVASTATIN [Concomitant]
     Indication: HYPERCHOLESTEROLAEMIA
  5. BISOPROLOL [Concomitant]
     Indication: HYPERTENSION
     Dates: start: 20100901
  6. VITAMIN D [Concomitant]
  7. CALCIUM CARBONATE [Concomitant]

REACTIONS (1)
  - PROTEINURIA [None]
